FAERS Safety Report 8424209-5 (Version None)
Quarter: 2012Q2

REPORT INFORMATION
  Report Type: 
  Country: None (occurrence: None)
  Receive Date: 20120608
  Receipt Date: 20120301
  Transmission Date: 20120825
  Serious: No
  Sender: FDA-Public Use
  Company Number: US-ASTRAZENECA-2012SE14568

PATIENT
  Age: 42 Year
  Sex: Female
  Weight: 62.6 kg

DRUGS (5)
  1. PREDNISONE [Concomitant]
  2. CLARITIN [Concomitant]
  3. ATENOLOL [Concomitant]
  4. PULMICORT FLEXHALER [Suspect]
     Indication: ASTHMA
     Dosage: PRESCRIBED 3 PUFFS AND TAKING 2 PUFFS BID
     Route: 055
  5. PEPCID [Concomitant]

REACTIONS (4)
  - BLOOD PRESSURE INCREASED [None]
  - ABDOMINAL PAIN UPPER [None]
  - INCORRECT DOSE ADMINISTERED [None]
  - HEART RATE INCREASED [None]
